FAERS Safety Report 6291413-4 (Version None)
Quarter: 2009Q3

REPORT INFORMATION
  Report Type: 
  Country: None (occurrence: None)
  Receive Date: 20090729
  Receipt Date: 20090729
  Transmission Date: 20100115
  Serious: Yes (Other)
  Sender: FDA-Public Use
  Company Number: None

PATIENT
  Sex: Male
  Weight: 72.5755 kg

DRUGS (1)
  1. LIPITOR [Suspect]
     Indication: HYPERLIPIDAEMIA
     Dosage: 20-80 1XDAY PO
     Route: 048

REACTIONS (6)
  - CONFUSIONAL STATE [None]
  - HALLUCINATION, VISUAL [None]
  - PAIN IN EXTREMITY [None]
  - PAROSMIA [None]
  - SLEEP DISORDER [None]
  - SOMNOLENCE [None]
